FAERS Safety Report 16227315 (Version 1)
Quarter: 2019Q2

REPORT INFORMATION
  Report Type: Spontaneous
  Country: FR (occurrence: FR)
  Receive Date: 20190423
  Receipt Date: 20190423
  Transmission Date: 20190711
  Serious: Yes (Hospitalization, Other)
  Sender: FDA-Public Use
  Company Number: FR-MYLANLABS-2019M1038367

PATIENT
  Age: 64 Year
  Sex: Female

DRUGS (9)
  1. PANTOPRAZOLE [Concomitant]
     Active Substance: PANTOPRAZOLE
     Dosage: UNK
  2. ALPRAZOLAM. [Concomitant]
     Active Substance: ALPRAZOLAM
     Dosage: UNK
  3. DUPHALAC [Concomitant]
     Active Substance: LACTULOSE
     Dosage: UNK
  4. MIOREL                             /00764801/ [Suspect]
     Active Substance: THIOCOLCHICOSIDE
     Indication: COMPLEX REGIONAL PAIN SYNDROME
     Dosage: UNK
     Route: 048
  5. LYRICA [Suspect]
     Active Substance: PREGABALIN
     Indication: AUTOIMMUNE NEUROPATHY
     Dosage: 5 DOSAGE FORM, QD (3.5 - 0 -1.5)
     Route: 048
  6. CALCITONIN SALMON. [Suspect]
     Active Substance: CALCITONIN SALMON
     Indication: OSTEOPOROSIS
     Dosage: 100 INTERNATIONAL UNIT, QD
     Route: 058
     Dates: start: 20190219, end: 20190312
  7. TRAMADOL HYDROCHLORIDE. [Concomitant]
     Active Substance: TRAMADOL HYDROCHLORIDE
     Dosage: UNK
  8. CARBOSYMAG                         /01711301/ [Concomitant]
     Dosage: UNK
  9. CARBOSYMAG                         /01711301/ [Concomitant]
     Dosage: UNK

REACTIONS (4)
  - Erythema [Recovered/Resolved]
  - Cholestasis [Recovering/Resolving]
  - Face oedema [Recovered/Resolved]
  - Influenza like illness [Recovered/Resolved]

NARRATIVE: CASE EVENT DATE: 20190312
